FAERS Safety Report 23311057 (Version 6)
Quarter: 2024Q2

REPORT INFORMATION
  Report Type: Spontaneous
  Country: JP (occurrence: JP)
  Receive Date: 20231218
  Receipt Date: 20240606
  Transmission Date: 20240716
  Serious: Yes (Hospitalization, Other)
  Sender: FDA-Public Use
  Company Number: None

PATIENT

DRUGS (6)
  1. NUCALA [Suspect]
     Active Substance: MEPOLIZUMAB
     Indication: Eosinophilic granulomatosis with polyangiitis
     Dosage: 300 MG, Q4W
     Route: 058
     Dates: start: 20211227
  2. PREDNISOLONE [Concomitant]
     Active Substance: PREDNISOLONE
     Indication: Eosinophilic granulomatosis with polyangiitis
     Dosage: 0.5 MG, 1D
  3. CORTRIL [Concomitant]
     Active Substance: HYDROCORTISONE
     Indication: Adrenal insufficiency
     Dosage: 20 MG
  4. CORTRIL [Concomitant]
     Active Substance: HYDROCORTISONE
     Dosage: 15 MG
  5. CORTRIL [Concomitant]
     Active Substance: HYDROCORTISONE
     Dosage: 10 MG, 1D
  6. GLYCOPYRROLATE\INDACATEROL\MOMETASONE FUROATE [Concomitant]
     Active Substance: GLYCOPYRROLATE\INDACATEROL\MOMETASONE FUROATE
     Dosage: 1 DF, 1D

REACTIONS (12)
  - White blood cell count decreased [Recovering/Resolving]
  - Cerebral infarction [Recovered/Resolved with Sequelae]
  - Cardiac failure acute [Recovered/Resolved]
  - Adrenal insufficiency [Recovered/Resolved]
  - Condition aggravated [Recovered/Resolved]
  - Pneumonia pneumococcal [Recovered/Resolved]
  - Hemiparesis [Recovered/Resolved with Sequelae]
  - Dyslalia [Recovered/Resolved with Sequelae]
  - Hypoxia [Recovered/Resolved]
  - Oropharyngeal pain [Recovered/Resolved]
  - Gait disturbance [Recovered/Resolved]
  - Therapeutic response decreased [Unknown]

NARRATIVE: CASE EVENT DATE: 20231205
